FAERS Safety Report 8320485-8 (Version None)
Quarter: 2012Q2

REPORT INFORMATION
  Report Type: 
  Country: None (occurrence: None)
  Receive Date: 20120427
  Receipt Date: 20120427
  Transmission Date: 20120825
  Serious: No
  Sender: FDA-Public Use
  Company Number: None

PATIENT
  Age: 54 Year
  Sex: Female
  Weight: 129.27 kg

DRUGS (2)
  1. LEVAQUIN [Suspect]
     Indication: BRONCHITIS
     Dosage: 7
     Dates: start: 20110216, end: 20110221
  2. LEVAQUIN [Concomitant]
     Indication: DYSPHONIA
     Dosage: 14
     Dates: start: 20110321, end: 20110403

REACTIONS (6)
  - TENDON RUPTURE [None]
  - INSOMNIA [None]
  - MUSCLE SPASMS [None]
  - DRUG EFFECT DECREASED [None]
  - DYSPHONIA [None]
  - PAIN [None]
